FAERS Safety Report 5609292-4 (Version None)
Quarter: 2008Q1

REPORT INFORMATION
  Report Type: 
  Country: None (occurrence: None)
  Receive Date: 20080131
  Receipt Date: 20080128
  Transmission Date: 20080703
  Serious: Yes (Hospitalization)
  Sender: FDA-Public Use
  Company Number: AU-BRISTOL-MYERS SQUIBB COMPANY-14004212

PATIENT
  Age: 20 Year
  Sex: Male

DRUGS (4)
  1. ABATACEPT [Suspect]
     Indication: CROHN'S DISEASE
     Dosage: ALSO TAKEN ON 02-JUL-07 TO 16-JUL-07,30JUL07TO28AUG07;25SEP07 TO 23OCT07-500 MG.
     Route: 042
     Dates: start: 20070702, end: 20071023
  2. PREDNISONE TAB [Concomitant]
     Dosage: FORM = TABS
     Dates: start: 20070508
  3. SALOFALK [Concomitant]
     Dosage: FORM = GRANULES
     Dates: start: 20060622
  4. CIPRINOL [Concomitant]
     Dates: start: 20070401

REACTIONS (1)
  - SINUS TACHYCARDIA [None]
